FAERS Safety Report 8834844 (Version 1)
Quarter: 2012Q4

REPORT INFORMATION
  Report Type: 
  Country: IT (occurrence: IT)
  Receive Date: 20121010
  Receipt Date: 20121010
  Transmission Date: 20130627
  Serious: Yes (Other)
  Sender: FDA-Public Use
  Company Number: IT-GLAXOSMITHKLINE-B0836625A

PATIENT
  Age: 77 Year
  Sex: Male

DRUGS (2)
  1. REVOLADE [Suspect]
     Indication: THROMBOCYTOPENIA
     Dosage: 25MG per day
     Route: 048
     Dates: start: 20120221, end: 20120322
  2. COUMADIN [Concomitant]
     Route: 048

REACTIONS (4)
  - Asthenia [Recovered/Resolved]
  - Hypotension [Recovered/Resolved]
  - Pyrexia [Recovered/Resolved]
  - Decreased appetite [Recovered/Resolved]
